FAERS Safety Report 25178182 (Version 2)
Quarter: 2025Q2

REPORT INFORMATION
  Report Type: Spontaneous
  Country: JP (occurrence: JP)
  Receive Date: 20250409
  Receipt Date: 20250504
  Transmission Date: 20250717
  Serious: Yes (Hospitalization)
  Sender: Unknown Manufacturer
  Company Number: JP-MTPC-MTPC2025-0006263

PATIENT
  Age: 75 Year
  Sex: Female

DRUGS (3)
  1. ARGATROBAN [Suspect]
     Active Substance: ARGATROBAN
     Dosage: 60 MILLIGRAM, QD
     Route: 065
  2. ASPIRIN [Suspect]
     Active Substance: ASPIRIN
     Indication: Brain stem infarction
     Route: 065
  3. EDARAVONE [Suspect]
     Active Substance: EDARAVONE
     Route: 065

REACTIONS (1)
  - Haemorrhagic cerebral infarction [Recovered/Resolved with Sequelae]
